FAERS Safety Report 7500948-5 (Version None)
Quarter: 2011Q2

REPORT INFORMATION
  Report Type: 
  Country: None (occurrence: None)
  Receive Date: 20110524
  Receipt Date: 20110516
  Transmission Date: 20111010
  Serious: Yes (Other)
  Sender: FDA-Public Use
  Company Number: GB-ABBOTT-11P-167-0700245-00

PATIENT
  Sex: Female

DRUGS (4)
  1. VALPROIC ACID [Suspect]
     Indication: GRAND MAL CONVULSION
     Route: 048
     Dates: start: 20070101
  2. FOLIC ACID [Concomitant]
     Indication: PRODUCT USED FOR UNKNOWN INDICATION
     Dates: start: 20100601
  3. VALPROATE SODIUM [Concomitant]
     Indication: GRAND MAL CONVULSION
     Dates: start: 19960101, end: 20070101
  4. VALPROIC ACID [Suspect]

REACTIONS (2)
  - EPILEPSY [None]
  - ANTICONVULSANT DRUG LEVEL DECREASED [None]
